FAERS Safety Report 11555459 (Version 1)
Quarter: 2015Q3

REPORT INFORMATION
  Report Type: Spontaneous
  Country: US (occurrence: US)
  Receive Date: 20150925
  Receipt Date: 20150925
  Transmission Date: 20151125
  Serious: No
  Sender: FDA-Public Use
  Company Number: US-SHIONOGI, INC-2015000874

PATIENT
  Sex: Female

DRUGS (2)
  1. ROBINUL [Suspect]
     Active Substance: GLYCOPYRROLATE
     Indication: OFF LABEL USE
  2. ROBINUL [Suspect]
     Active Substance: GLYCOPYRROLATE
     Indication: HYPERHIDROSIS
     Dosage: 2 MG, BID
     Route: 065

REACTIONS (3)
  - Therapeutic response unexpected [Unknown]
  - Dry mouth [Unknown]
  - Off label use [Unknown]
